FAERS Safety Report 5104949-6 (Version None)
Quarter: 2006Q3

REPORT INFORMATION
  Report Type: 
  Country: None (occurrence: None)
  Receive Date: 20060908
  Receipt Date: 20060908
  Transmission Date: 20061208
  Serious: Yes (Hospitalization)
  Sender: FDA-Public Use
  Company Number: None

PATIENT
  Sex: Female
  Weight: 57.1532 kg

DRUGS (2)
  1. IFOSFAMIDE [Suspect]
     Indication: SARCOMA UTERUS
     Dosage: 6 GM/M2 2 DOSES IV
     Route: 042
     Dates: start: 20060215, end: 20060216
  2. CISPLATIN [Suspect]
     Indication: SARCOMA UTERUS
     Dosage: 60 MG /M2 IV
     Route: 042
     Dates: start: 20060215, end: 20060216

REACTIONS (4)
  - ENCEPHALOPATHY [None]
  - LOSS OF CONSCIOUSNESS [None]
  - METABOLIC ACIDOSIS [None]
  - RENAL FAILURE ACUTE [None]
